FAERS Safety Report 5049123-7 (Version None)
Quarter: 2006Q3

REPORT INFORMATION
  Report Type: 
  Country: None (occurrence: None)
  Receive Date: 20060706
  Receipt Date: 20060626
  Transmission Date: 20061208
  Serious: Yes (Other)
  Sender: FDA-Public Use
  Company Number: 2004033553

PATIENT
  Age: 23 Year
  Sex: Female
  Weight: 52 kg

DRUGS (18)
  1. ZOLOFT [Suspect]
     Indication: BIPOLAR DISORDER
     Dosage: 50 MG (50 MG, 1 IN 1 D), ORAL
     Route: 048
     Dates: start: 20000101, end: 20060401
  2. ZOLOFT [Suspect]
     Indication: BIPOLAR I DISORDER
     Dosage: 50 MG (50 MG, 1 IN 1 D), ORAL
     Route: 048
     Dates: start: 20000101, end: 20060401
  3. ZOLOFT [Suspect]
     Indication: DEPRESSION
     Dosage: 50 MG (50 MG, 1 IN 1 D), ORAL
     Route: 048
     Dates: start: 20000101, end: 20060401
  4. PROVERA [Suspect]
     Indication: UTERINE HAEMORRHAGE
     Dosage: 20 MG (10 MG, 2 IN 1 D), ORAL
     Route: 048
     Dates: start: 20050810
  5. TINIDAZOLE/TIOCONAZOLE (TIOCONAZOLE, TINADAZOLE) [Suspect]
     Indication: VAGINITIS BACTERIAL
     Dosage: VAGINAL
     Route: 067
     Dates: start: 20050825
  6. CLONAZEPAM [Suspect]
     Indication: BIPOLAR DISORDER
     Dosage: 3 MG (3 MG, 1 IN 1 D), ORAL
     Route: 048
     Dates: start: 20050803
  7. DIANE (CYPROTERONE ACETATE, ETHINYLESTRADIOL) [Suspect]
     Indication: ORAL CONTRACEPTION
     Dosage: DAILY, ORAL
     Route: 048
     Dates: start: 20051001
  8. PAROXETINE [Suspect]
     Indication: BIPOLAR DISORDER
     Dates: start: 20060101
  9. SYNTHROID [Concomitant]
  10. PIROXICAM [Concomitant]
  11. ROHYPNOL (FLUNITRAZEPAM) [Concomitant]
  12. L-LYSINE (LYSINE) [Concomitant]
  13. AMPLICTIL (CHLORPROMAZINE) [Concomitant]
  14. HERBAL PREPARATION [Concomitant]
  15. BETAGAN [Concomitant]
  16. ALL OTHER THERAPEUTIC PRODUCTS [Concomitant]
  17. MIDAZOLAM HYDROCHLORIDE [Concomitant]
  18. VITAMINS [Concomitant]

REACTIONS (45)
  - ABDOMINAL PAIN [None]
  - ABORTION [None]
  - AGGRESSION [None]
  - AGITATION [None]
  - ALCOHOLISM [None]
  - AMENORRHOEA [None]
  - AMNESIA [None]
  - ANOREXIA [None]
  - ANXIETY [None]
  - BACTERIAL INFECTION [None]
  - BLOOD PRESSURE DECREASED [None]
  - CONDITION AGGRAVATED [None]
  - DEPRESSION [None]
  - DISEASE RECURRENCE [None]
  - DIZZINESS [None]
  - DRUG EXPOSURE DURING PREGNANCY [None]
  - DYSKINESIA [None]
  - EUPHORIC MOOD [None]
  - EYE DISORDER [None]
  - EYELID PTOSIS [None]
  - FLATULENCE [None]
  - GALACTORRHOEA [None]
  - HEADACHE [None]
  - HORMONE LEVEL ABNORMAL [None]
  - HYPOAESTHESIA [None]
  - HYPOAESTHESIA FACIAL [None]
  - HYPOTHYROIDISM [None]
  - INFLUENZA [None]
  - INSOMNIA [None]
  - IRRITABILITY [None]
  - MANIA [None]
  - MENSTRUATION IRREGULAR [None]
  - MOOD ALTERED [None]
  - NAUSEA [None]
  - PAIN [None]
  - SEBORRHOEIC DERMATITIS [None]
  - SINUSITIS [None]
  - SKIN DISCOLOURATION [None]
  - SOMNOLENCE [None]
  - SUICIDE ATTEMPT [None]
  - TACHYCARDIA [None]
  - TREMOR [None]
  - VAGINAL HAEMORRHAGE [None]
  - VAGINAL INFECTION [None]
  - WEIGHT DECREASED [None]
